FAERS Safety Report 6566162-5 (Version None)
Quarter: 2010Q1

REPORT INFORMATION
  Report Type: 
  Country: None (occurrence: None)
  Receive Date: 20100202
  Receipt Date: 20100125
  Transmission Date: 20100710
  Serious: Yes (Other)
  Sender: FDA-Public Use
  Company Number: FR-ASTRAZENECA-2010SE04095

PATIENT
  Age: 41 Year
  Sex: Male

DRUGS (3)
  1. CRESTOR [Suspect]
     Route: 048
     Dates: start: 20090512
  2. ATRIPLA [Suspect]
     Indication: HIV TEST POSITIVE
     Route: 048
     Dates: start: 20090908
  3. NOCTRAN [Suspect]
     Route: 048

REACTIONS (1)
  - VOMITING [None]
